FAERS Safety Report 9058381 (Version 1)
Quarter: 2013Q1

REPORT INFORMATION
  Report Type: Spontaneous
  Country: CO (occurrence: CO)
  Receive Date: 20130211
  Receipt Date: 20130211
  Transmission Date: 20140127
  Serious: Yes (Death)
  Sender: FDA-Public Use
  Company Number: CO-JNJFOC-20130204087

PATIENT
  Age: 79 Year
  Sex: Female

DRUGS (1)
  1. REMINYL ER [Suspect]
     Indication: AMNESIA
     Route: 048
     Dates: start: 20110114

REACTIONS (1)
  - Cardio-respiratory arrest [Fatal]
